FAERS Safety Report 6231780-0 (Version None)
Quarter: 2009Q2

REPORT INFORMATION
  Report Type: 
  Country: None (occurrence: None)
  Receive Date: 20090616
  Receipt Date: 20090605
  Transmission Date: 20091009
  Serious: Yes (Other)
  Sender: FDA-Public Use
  Company Number: PHHY2009JP07248

PATIENT
  Age: 94 Year
  Sex: Female

DRUGS (5)
  1. DIOVAN [Suspect]
     Dosage: UNK
     Route: 048
     Dates: start: 20071001
  2. ARTIST [Concomitant]
     Route: 048
  3. DIGOXIN [Concomitant]
     Route: 048
  4. ASPIRIN [Concomitant]
     Route: 048
  5. ALDACTONE [Concomitant]
     Route: 048

REACTIONS (3)
  - DERMATITIS BULLOUS [None]
  - HYPERKALAEMIA [None]
  - OEDEMA [None]
